FAERS Safety Report 21070467 (Version 3)
Quarter: 2022Q3

REPORT INFORMATION
  Report Type: Spontaneous
  Country: US (occurrence: US)
  Receive Date: 20220712
  Receipt Date: 20220720
  Transmission Date: 20221027
  Serious: No
  Sender: FDA-Public Use
  Company Number: US-BAYER-2022A096146

PATIENT
  Age: 48 Year
  Sex: Female

DRUGS (1)
  1. ESTRADIOL HEMIHYDRATE [Suspect]
     Active Substance: ESTRADIOL HEMIHYDRATE
     Dosage: 1 DF, OW
     Route: 062
     Dates: start: 202007

REACTIONS (2)
  - Product adhesion issue [None]
  - Product dose omission issue [None]

NARRATIVE: CASE EVENT DATE: 20220701
